FAERS Safety Report 8059687-7 (Version None)
Quarter: 2012Q1

REPORT INFORMATION
  Report Type: 
  Country: None (occurrence: None)
  Receive Date: 20120120
  Receipt Date: 20120113
  Transmission Date: 20120608
  Serious: Yes (Other)
  Sender: FDA-Public Use
  Company Number: PHHY2012ZA002904

PATIENT
  Sex: Female
  Weight: 125 kg

DRUGS (17)
  1. TRAMADOL HYDROCHLORIDE/ACETAMINOPHEN [Concomitant]
     Dosage: 2 T BD PRN
  2. WARFARIN SODIUM [Concomitant]
     Dosage: 5 MG, QD (ACC TO INR)
  3. DIAMICRON [Concomitant]
     Indication: DIABETES MELLITUS
     Dosage: 39 MG, QID
  4. SIMVASTATIN [Concomitant]
     Dosage: 20 MG, EVERY NIGHT
  5. DIAMICRON MR [Concomitant]
     Dosage: 30 MG, (4T MANE)
  6. CELEBREX [Concomitant]
     Dosage: 200 MG, QD PRN
  7. LEVOTHYROXINE SODIUM [Concomitant]
     Dosage: 0.1 MG, QD 5X/WEEK
  8. BISOPROLOL FUMARATE [Concomitant]
     Dosage: 5 MG 1/2T, QD
  9. SPIRACTIN [Concomitant]
     Dosage: 25 MG, (2T MANE)
  10. GALVUS [Concomitant]
     Dosage: 50 MG, BID
  11. VALSARTAN [Suspect]
     Indication: HYPERTENSION
     Dosage: 80 MG, NOCTE (EVERY NIGHT)
  12. ZILDEM [Concomitant]
     Indication: HYPERTENSION
     Dosage: 240 MG, MANE (EVERY MORNING)
  13. PANAFCORT [Concomitant]
     Dosage: 5 MG, EVERY MORNING (EVERY 2ND DAY)
  14. NEXIUM [Concomitant]
     Dosage: 20 MG, QD
  15. METHOTREXATE [Concomitant]
     Dosage: 2.5 MG ONCE/WEEK
  16. FOLIC ACID [Concomitant]
     Dosage: 5 MG, QD
  17. LEVOTHYROXINE SODIUM [Concomitant]
     Dosage: 0.2 MG, 2X/WEEK

REACTIONS (3)
  - HYPERCHOLESTEROLAEMIA [None]
  - DIABETES MELLITUS [None]
  - DEEP VEIN THROMBOSIS [None]
